FAERS Safety Report 16069045 (Version 2)
Quarter: 2019Q2

REPORT INFORMATION
  Report Type: Report from Study
  Country: US (occurrence: US)
  Receive Date: 20190313
  Receipt Date: 20190404
  Transmission Date: 20190711
  Serious: Yes (Hospitalization)
  Sender: FDA-Public Use
  Company Number: US-ACTELION-A-NJ2019-187374

PATIENT
  Age: 65 Year
  Sex: Female

DRUGS (37)
  1. CITALOPRAM [Concomitant]
     Active Substance: CITALOPRAM HYDROBROMIDE
     Indication: DEPRESSION
     Dosage: 20 MG, QD
     Route: 048
     Dates: start: 20131015
  2. SPIRIVA [Concomitant]
     Active Substance: TIOTROPIUM BROMIDE MONOHYDRATE
     Indication: ASTHMA
     Dosage: 18 MCG, QD
     Route: 055
     Dates: start: 20180813
  3. RANEXA [Concomitant]
     Active Substance: RANOLAZINE
  4. ADCIRCA [Concomitant]
     Active Substance: TADALAFIL
  5. METHOTREXATE. [Suspect]
     Active Substance: METHOTREXATE
     Indication: PRODUCT USED FOR UNKNOWN INDICATION
     Route: 065
  6. OMEPRAZOLE. [Concomitant]
     Active Substance: OMEPRAZOLE
     Indication: GASTROOESOPHAGEAL REFLUX DISEASE
     Dosage: 40 MG, QD
     Route: 048
     Dates: start: 20131016
  7. POTASSIUM CHLORIDE. [Concomitant]
     Active Substance: POTASSIUM CHLORIDE
     Indication: HYPERTENSION
     Dosage: UNK
     Dates: start: 20141219
  8. ESCITALOPRAM [Concomitant]
     Active Substance: ESCITALOPRAM OXALATE
  9. ATIVAN [Concomitant]
     Active Substance: LORAZEPAM
  10. LOSARTAN. [Concomitant]
     Active Substance: LOSARTAN
  11. LYRICA [Concomitant]
     Active Substance: PREGABALIN
  12. BACLOFEN. [Suspect]
     Active Substance: BACLOFEN
     Indication: MUSCLE SPASMS
     Dosage: 20 MG, TID
     Route: 065
     Dates: start: 20180510
  13. ENBREL [Suspect]
     Active Substance: ETANERCEPT
     Indication: PSORIATIC ARTHROPATHY
     Dosage: 1 ML, Q1WEEK
     Route: 058
     Dates: start: 20180517
  14. FOLIC ACID. [Concomitant]
     Active Substance: FOLIC ACID
     Indication: ANAEMIA
     Dosage: 1 MG, QD
     Route: 048
     Dates: start: 20170817
  15. RANITIDINE. [Concomitant]
     Active Substance: RANITIDINE
  16. UPTRAVI [Suspect]
     Active Substance: SELEXIPAG
     Dosage: 400 MCG, BID
     Route: 048
  17. BENZONATATE. [Suspect]
     Active Substance: BENZONATATE
     Indication: COUGH
     Dosage: 100 MG, QD
     Route: 065
     Dates: start: 20181211
  18. SYMBICORT [Concomitant]
     Active Substance: BUDESONIDE\FORMOTEROL FUMARATE DIHYDRATE
     Indication: ASTHMA
     Dosage: 80 MCG-4.5 MCG, 2 PUFFS QD
     Route: 055
     Dates: start: 20180813
  19. VENTOLIN [Concomitant]
     Active Substance: ALBUTEROL SULFATE
     Indication: ASTHMA
     Dosage: 90 MCG, QD 2 PUFFS
     Route: 055
     Dates: start: 20140523
  20. PANTOPRAZOLE [Concomitant]
     Active Substance: PANTOPRAZOLE
  21. HYDROCODONE/ACETAMINOPHEN [Suspect]
     Active Substance: ACETAMINOPHEN\HYDROCODONE
     Indication: PAIN
     Dosage: 7.5 MG-325 MG
     Route: 048
     Dates: start: 20140115
  22. LORAZEPAM. [Suspect]
     Active Substance: LORAZEPAM
     Indication: ANXIETY
     Dosage: 0.5 MG, PRN TID
     Route: 065
     Dates: start: 20131015
  23. ESTRADIOL. [Concomitant]
     Active Substance: ESTRADIOL
     Indication: MENOPAUSE
     Dosage: 1 PATCH, BID
     Route: 062
     Dates: start: 20180223
  24. LORTAB [Concomitant]
     Active Substance: ACETAMINOPHEN\HYDROCODONE BITARTRATE
  25. UPTRAVI [Suspect]
     Active Substance: SELEXIPAG
     Indication: PULMONARY ARTERIAL HYPERTENSION
     Dosage: 200 MCG, BID
     Route: 048
     Dates: start: 20190208
  26. IPRATROPIUM/ALBUTEROL [Concomitant]
     Active Substance: ALBUTEROL\IPRATROPIUM
     Indication: ASTHMA
     Dosage: 1 ML, PRN
     Route: 055
     Dates: start: 20150724
  27. LACTULOSE. [Concomitant]
     Active Substance: LACTULOSE
     Indication: CONSTIPATION
     Dosage: 15 ML, QD
     Route: 048
     Dates: start: 20190313
  28. ONE A DAY PLUS IRON [Concomitant]
     Indication: HYPOVITAMINOSIS
     Dosage: UNK, QD
     Route: 048
     Dates: start: 20181211
  29. POTASSIUM CHLORIDE. [Concomitant]
     Active Substance: POTASSIUM CHLORIDE
     Indication: POLYURIA
  30. FUROSEMIDE. [Concomitant]
     Active Substance: FUROSEMIDE
     Dosage: UNK
  31. MONTELUKAST [Concomitant]
     Active Substance: MONTELUKAST SODIUM
     Indication: ASTHMA
     Dosage: 10 MG, QD
     Route: 048
     Dates: start: 20190206
  32. PREDNISOLONE ACETATE. [Concomitant]
     Active Substance: PREDNISOLONE ACETATE
     Dosage: 1 DROP, QD
     Route: 047
     Dates: start: 20150116
  33. TORSEMIDE. [Concomitant]
     Active Substance: TORSEMIDE
     Indication: DIURETIC THERAPY
     Dosage: 50 MG, QD
     Route: 048
     Dates: start: 20141219
  34. MULTIVITAMIN [Concomitant]
     Active Substance: VITAMINS
  35. LETAIRIS [Concomitant]
     Active Substance: AMBRISENTAN
     Indication: PULMONARY ARTERIAL HYPERTENSION
     Dosage: 5 MG, QD
     Dates: start: 20150108
  36. PRAVASTATIN. [Concomitant]
     Active Substance: PRAVASTATIN
     Indication: HYPERLIPIDAEMIA
     Dosage: 80 MG, QD
     Route: 048
     Dates: start: 20181219
  37. FUROSEMIDE. [Concomitant]
     Active Substance: FUROSEMIDE
     Dosage: 20 UNK
     Route: 065

REACTIONS (22)
  - Pulmonary arterial hypertension [Unknown]
  - Oedema peripheral [Unknown]
  - Interstitial lung disease [Unknown]
  - Ammonia increased [Unknown]
  - Spinal osteoarthritis [Unknown]
  - Extensor plantar response [Unknown]
  - Computerised tomogram thorax abnormal [Unknown]
  - Dyspnoea [Recovering/Resolving]
  - Headache [Recovered/Resolved]
  - Fall [Unknown]
  - Lymphadenopathy [Unknown]
  - Constipation [Unknown]
  - Asthenia [Unknown]
  - Acute kidney injury [Unknown]
  - Wheezing [Recovering/Resolving]
  - Contusion [Unknown]
  - Paraesthesia [Unknown]
  - Muscular weakness [Unknown]
  - Dizziness [Unknown]
  - Atelectasis [Unknown]
  - Grip strength decreased [Unknown]
  - Asthma [Recovered/Resolved]

NARRATIVE: CASE EVENT DATE: 20190213
